FAERS Safety Report 15700256 (Version 3)
Quarter: 2019Q1

REPORT INFORMATION
  Report Type: Spontaneous
  Country: US (occurrence: US)
  Receive Date: 20181207
  Receipt Date: 20190215
  Transmission Date: 20190417
  Serious: No
  Sender: FDA-Public Use
  Company Number: US-PFIZER INC-2018492884

PATIENT
  Age: 89 Year
  Sex: Female

DRUGS (1)
  1. XELJANZ [Suspect]
     Active Substance: TOFACITINIB CITRATE
     Dosage: 5 MG,  [ONE PILL EVERY TWO DAYS]
     Dates: start: 201808

REACTIONS (4)
  - Somnolence [Unknown]
  - Sinusitis [Unknown]
  - Intentional product misuse [Unknown]
  - Pain [Unknown]
